FAERS Safety Report 4643112-X (Version None)
Quarter: 2005Q2

REPORT INFORMATION
  Report Type: 
  Country: None (occurrence: None)
  Receive Date: 20050421
  Receipt Date: 20050218
  Transmission Date: 20051028
  Serious: Yes (Hospitalization)
  Sender: FDA-Public Use
  Company Number: 2005033864

PATIENT
  Age: 90 Year
  Sex: Female

DRUGS (2)
  1. CELEBREX [Suspect]
     Indication: OSTEOARTHRITIS
     Dosage: 200 MG (200 MG, 1 IN 1 D), ORAL
     Route: 048
     Dates: start: 20010101, end: 20040101
  2. PROPRANOLOL CHLORHYDRATE (PROPRANOLOL HYDROCHLORIDE) [Concomitant]

REACTIONS (1)
  - CEREBROVASCULAR ACCIDENT [None]
